FAERS Safety Report 4272588-5 (Version None)
Quarter: 2004Q1

REPORT INFORMATION
  Report Type: 
  Country: None (occurrence: None)
  Receive Date: 20040114
  Receipt Date: 20040114
  Transmission Date: 20041129
  Serious: Yes (Hospitalization)
  Sender: FDA-Public Use
  Company Number: None

PATIENT
  Age: 74 Year
  Sex: Male
  Weight: 66.2 kg

DRUGS (4)
  1. PHENYTOIN [Suspect]
  2. LEVETIRACETAM [Concomitant]
  3. PHENYTOIN NA [Concomitant]
  4. LAMOTRIGINE [Concomitant]

REACTIONS (2)
  - NEUTROPENIA [None]
  - THROMBOCYTOPENIA [None]
